FAERS Safety Report 8545839-6 (Version None)
Quarter: 2012Q3

REPORT INFORMATION
  Report Type: 
  Country: None (occurrence: None)
  Receive Date: 20120727
  Receipt Date: 20111201
  Transmission Date: 20120928
  Serious: No
  Sender: FDA-Public Use
  Company Number: US-ASTRAZENECA-2011SE68711

PATIENT
  Age: 44 Year
  Sex: Female
  Weight: 54.9 kg

DRUGS (18)
  1. TRAZODONE HCL [Concomitant]
     Indication: MAJOR DEPRESSION
  2. CLONAZEPAM [Concomitant]
     Indication: MAJOR DEPRESSION
  3. ACETAMINOPHEN AND CODEINE NUMBER 4 [Concomitant]
     Indication: MIGRAINE
  4. ZOLOFT [Concomitant]
     Indication: BIPOLAR DISORDER
  5. ROBAX [Concomitant]
     Indication: MIGRAINE
  6. CYCLOBENAZPRINE [Concomitant]
     Indication: BIPOLAR DISORDER
  7. SEROQUEL XR [Suspect]
     Indication: BIPOLAR DISORDER
     Route: 048
     Dates: start: 20060101
  8. CLONAZEPAM [Concomitant]
     Indication: BIPOLAR DISORDER
  9. MEPERTAB [Concomitant]
     Indication: MIGRAINE
  10. ESTRADIOL [Concomitant]
  11. TRAZODONE HCL [Concomitant]
     Indication: BIPOLAR DISORDER
  12. ACETAMINOPHEN AND CODEINE NUMBER 4 [Concomitant]
     Indication: PAIN
  13. SEROQUEL XR [Suspect]
     Indication: DEPRESSION
     Route: 048
     Dates: start: 20060101
  14. SEROQUEL XR [Suspect]
     Indication: SENSORY LEVEL ABNORMAL
     Route: 048
     Dates: start: 20060101
  15. ZOLOFT [Concomitant]
     Indication: MAJOR DEPRESSION
  16. DEXILANT [Concomitant]
     Indication: GASTROOESOPHAGEAL REFLUX DISEASE
  17. CYCLOBENAZPRINE [Concomitant]
     Indication: MAJOR DEPRESSION
  18. SEROQUEL XR [Suspect]
     Indication: HALLUCINATION, AUDITORY
     Route: 048
     Dates: start: 20060101

REACTIONS (4)
  - EATING DISORDER [None]
  - WEIGHT DECREASED [None]
  - DRUG DOSE OMISSION [None]
  - OFF LABEL USE [None]
